FAERS Safety Report 12974086 (Version 1)
Quarter: 2016Q4

REPORT INFORMATION
  Report Type: Spontaneous
  Country: US (occurrence: US)
  Receive Date: 20161124
  Receipt Date: 20161124
  Transmission Date: 20170207
  Serious: Yes (Hospitalization)
  Sender: FDA-Public Use
  Company Number: US-LUPIN PHARMACEUTICALS INC.-2016-05149

PATIENT
  Age: 42 Year
  Sex: Female
  Weight: 79.45 kg

DRUGS (1)
  1. ENSKYCE [Suspect]
     Active Substance: DESOGESTREL\ETHINYL ESTRADIOL
     Indication: VAGINAL HAEMORRHAGE
     Dosage: 0.15MG/0.03MG ONCE DAILY
     Route: 048
     Dates: start: 20160925, end: 20161012

REACTIONS (2)
  - Pulmonary embolism [Not Recovered/Not Resolved]
  - Product use issue [Unknown]

NARRATIVE: CASE EVENT DATE: 20160925
